FAERS Safety Report 5597464-7 (Version None)
Quarter: 2007Q4

REPORT INFORMATION
  Report Type: 
  Country: None (occurrence: None)
  Receive Date: 20071221
  Receipt Date: 20071010
  Transmission Date: 20080405
  Serious: No
  Sender: FDA-Public Use
  Company Number: SPV1-2007-04481

PATIENT
  Age: 10 Year
  Sex: Male

DRUGS (4)
  1. VYVANSE [Suspect]
     Dosage: 70 MG, 1X/DAY:QD,ORAL
     Route: 048
     Dates: start: 20070901
  2. DEPAKOTE ER [Concomitant]
  3. RISPERDAL [Concomitant]
  4. LEXAPRO [Concomitant]

REACTIONS (1)
  - SKIN DISCOLOURATION [None]
